FAERS Safety Report 18086132 (Version 1)
Quarter: 2020Q3

REPORT INFORMATION
  Report Type: Spontaneous
  Country: US (occurrence: US)
  Receive Date: 20200727
  Receipt Date: 20200727
  Transmission Date: 20201103
  Serious: No
  Sender: FDA-Public Use
  Company Number: None

PATIENT

DRUGS (4)
  1. DEXRAZOXANE HYDROCHLORIDE. [Suspect]
     Active Substance: DEXRAZOXANE HYDROCHLORIDE
     Indication: CARDIOTOXICITY
  2. DEXRAZOXANE HYDROCHLORIDE. [Suspect]
     Active Substance: DEXRAZOXANE HYDROCHLORIDE
     Indication: CARDIOTOXICITY
  3. DEXRAZOXANE HYDROCHLORIDE. [Suspect]
     Active Substance: DEXRAZOXANE HYDROCHLORIDE
     Indication: PROPHYLAXIS
  4. DEXRAZOXANE HYDROCHLORIDE. [Suspect]
     Active Substance: DEXRAZOXANE HYDROCHLORIDE
     Indication: PROPHYLAXIS

REACTIONS (3)
  - Product reconstitution quality issue [None]
  - Product preparation issue [None]
  - Product label issue [None]

NARRATIVE: CASE EVENT DATE: 20200716
